FAERS Safety Report 24668204 (Version 1)
Quarter: 2024Q4

REPORT INFORMATION
  Report Type: Spontaneous
  Country: BE (occurrence: BE)
  Receive Date: 20241127
  Receipt Date: 20241127
  Transmission Date: 20250115
  Serious: Yes (Life-Threatening)
  Sender: BRISTOL-MYERS SQUIBB COMPANY
  Company Number: BE-BRISTOL-MYERS SQUIBB COMPANY-2024-184236

PATIENT
  Age: 9 Decade

DRUGS (1)
  1. OPDIVO [Suspect]
     Active Substance: NIVOLUMAB
     Indication: Adenocarcinoma

REACTIONS (3)
  - General physical health deterioration [Not Recovered/Not Resolved]
  - Decreased appetite [Unknown]
  - Weight decreased [Unknown]
